FAERS Safety Report 6436151-X (Version None)
Quarter: 2009Q4

REPORT INFORMATION
  Report Type: 
  Country: None (occurrence: None)
  Receive Date: 20091111
  Receipt Date: 20091106
  Transmission Date: 20100525
  Serious: No
  Sender: FDA-Public Use
  Company Number: BR-ROCHE-609038

PATIENT
  Sex: Female
  Weight: 2.9 kg

DRUGS (1)
  1. ROACUTAN [Suspect]
     Indication: ACNE
     Dosage: DURING 1ST MONTH, TOOK 1CAP/DAY AND ON 2ND MONTH, 1CAP EVERY OTHER DAY OR 1 CAP EVERY TWO DAYS
     Route: 064
     Dates: start: 20081001, end: 20081201

REACTIONS (2)
  - NO ADVERSE EVENT [None]
  - NORMAL NEWBORN [None]
